FAERS Safety Report 17124401 (Version 2)
Quarter: 2021Q1

REPORT INFORMATION
  Report Type: Spontaneous
  Country: CH (occurrence: CH)
  Receive Date: 20191206
  Receipt Date: 20210303
  Transmission Date: 20210419
  Serious: Yes (Hospitalization, Other)
  Sender: FDA-Public Use
  Company Number: CH-ELI_LILLY_AND_COMPANY-CH201911014098

PATIENT
  Age: 16 Year
  Sex: Female

DRUGS (12)
  1. ABILIFY [Suspect]
     Active Substance: ARIPIPRAZOLE
     Indication: PRODUCT USED FOR UNKNOWN INDICATION
     Dosage: UNK UNK, UNKNOWN
     Route: 048
     Dates: start: 20180807, end: 20180914
  2. ABILIFY [Suspect]
     Active Substance: ARIPIPRAZOLE
     Dosage: 20 MG, EACH MORNING
     Route: 048
     Dates: start: 20180814, end: 20191111
  3. ABILIFY [Suspect]
     Active Substance: ARIPIPRAZOLE
     Dosage: 10 MG, DAILY
     Route: 048
     Dates: start: 20191111, end: 20200225
  4. ZYPREXA [Suspect]
     Active Substance: OLANZAPINE
     Dosage: UNK, PRN
     Route: 048
     Dates: start: 201910, end: 20191031
  5. ZYPREXA [Suspect]
     Active Substance: OLANZAPINE
     Dosage: 2.5 MG, BID
     Route: 048
     Dates: start: 20191111, end: 20191114
  6. ZOLOFT [Suspect]
     Active Substance: SERTRALINE HYDROCHLORIDE
     Dosage: 50 MG, EACH MORNING
     Route: 048
     Dates: start: 20190930, end: 20191031
  7. ZYPREXA [Suspect]
     Active Substance: OLANZAPINE
     Dosage: UNK UNK, PRN
     Route: 048
     Dates: start: 201910, end: 20191031
  8. ABILIFY [Suspect]
     Active Substance: ARIPIPRAZOLE
     Dosage: 2.5 MG, DAILY
     Route: 048
     Dates: start: 20200225
  9. ZYPREXA [Suspect]
     Active Substance: OLANZAPINE
     Indication: PRODUCT USED FOR UNKNOWN INDICATION
     Dosage: UNK UNK, UNKNOWN
     Route: 048
     Dates: start: 201909, end: 201910
  10. ZOLOFT [Suspect]
     Active Substance: SERTRALINE HYDROCHLORIDE
     Dosage: 75 MG, DAILY
     Route: 048
     Dates: start: 20191031, end: 20200225
  11. ZYPREXA [Suspect]
     Active Substance: OLANZAPINE
     Dosage: 5 MG, BID
     Route: 048
     Dates: start: 20191031, end: 20191111
  12. ZOLOFT [Suspect]
     Active Substance: SERTRALINE HYDROCHLORIDE
     Indication: PRODUCT USED FOR UNKNOWN INDICATION
     Dosage: UNK UNK, UNKNOWN
     Route: 048
     Dates: start: 201909, end: 20190930

REACTIONS (3)
  - Suicidal ideation [Unknown]
  - Weight increased [Not Recovered/Not Resolved]
  - Psychotic disorder [Unknown]

NARRATIVE: CASE EVENT DATE: 20190930
